FAERS Safety Report 6482054-4 (Version None)
Quarter: 2009Q4

REPORT INFORMATION
  Report Type: 
  Country: None (occurrence: None)
  Receive Date: 20091208
  Receipt Date: 20090730
  Transmission Date: 20100525
  Serious: No
  Sender: FDA-Public Use
  Company Number: US-AMGEN-KDL341635

PATIENT
  Sex: Female
  Weight: 75.4 kg

DRUGS (4)
  1. ENBREL [Suspect]
     Indication: RHEUMATOID ARTHRITIS
     Route: 058
     Dates: start: 20060901
  2. PREDNISONE [Concomitant]
  3. METHOTREXATE [Concomitant]
  4. CELEBREX [Concomitant]

REACTIONS (2)
  - CAPILLARITIS [None]
  - SCHAMBERG'S DISEASE [None]
